FAERS Safety Report 15178840 (Version 2)
Quarter: 2018Q3

REPORT INFORMATION
  Report Type: Report from Study
  Country: GT (occurrence: GT)
  Receive Date: 20180722
  Receipt Date: 20180726
  Transmission Date: 20181010
  Serious: Yes (Other)
  Sender: FDA-Public Use
  Company Number: PHHY2017GT085261

PATIENT
  Age: 44 Year
  Sex: Female

DRUGS (4)
  1. SCAPHO [Suspect]
     Active Substance: SECUKINUMAB
     Dosage: 150 MG, UNK
     Route: 065
     Dates: start: 20170609
  2. SCAPHO [Suspect]
     Active Substance: SECUKINUMAB
     Dosage: 150 MG, UNK
     Route: 065
     Dates: start: 20170602
  3. SCAPHO [Suspect]
     Active Substance: SECUKINUMAB
     Dosage: 150 MG, UNK
     Route: 065
  4. SCAPHO [Suspect]
     Active Substance: SECUKINUMAB
     Indication: PRODUCT USED FOR UNKNOWN INDICATION
     Dosage: 150 MG, UNK
     Route: 065

REACTIONS (16)
  - Productive cough [Unknown]
  - Decreased immune responsiveness [Unknown]
  - Abdominal discomfort [Unknown]
  - Malaise [Unknown]
  - Cough [Unknown]
  - Arthralgia [Unknown]
  - Gastrointestinal candidiasis [Unknown]
  - Arthritis [Unknown]
  - Pain [Unknown]
  - Nausea [Unknown]
  - Chest discomfort [Unknown]
  - Mobility decreased [Unknown]
  - Headache [Unknown]
  - Tarsal tunnel syndrome [Unknown]
  - Pyrexia [Unknown]
  - Fatigue [Unknown]
